FAERS Safety Report 4897602-5 (Version None)
Quarter: 2006Q1

REPORT INFORMATION
  Report Type: 
  Country: None (occurrence: None)
  Receive Date: 20060130
  Receipt Date: 20060130
  Transmission Date: 20060701
  Serious: Yes (Death)
  Sender: FDA-Public Use
  Company Number: None

PATIENT
  Age: 87 Year
  Sex: Female
  Weight: 44.9061 kg

DRUGS (1)
  1. NAVELBINE [Suspect]
     Indication: METASTATIC NEOPLASM
     Dosage: 30 MG. NAVELBINE ONCE
     Dates: start: 20040810, end: 20040817

REACTIONS (4)
  - CAECITIS [None]
  - MULTI-ORGAN FAILURE [None]
  - NECROSIS [None]
  - SEPTIC SHOCK [None]
